APPROVED DRUG PRODUCT: VIRA-A
Active Ingredient: VIDARABINE
Strength: EQ 187.4MG BASE/ML
Dosage Form/Route: INJECTABLE;INJECTION
Application: N050523 | Product #001
Applicant: PARKEDALE PHARMACEUTICALS INC
Approved: Approved Prior to Jan 1, 1982 | RLD: No | RS: No | Type: DISCN